FAERS Safety Report 5662314-7 (Version None)
Quarter: 2008Q1

REPORT INFORMATION
  Report Type: 
  Country: None (occurrence: None)
  Receive Date: 20080312
  Receipt Date: 20080229
  Transmission Date: 20080703
  Serious: Yes (Other)
  Sender: FDA-Public Use
  Company Number: BE-PFIZER INC-2008020302

PATIENT
  Sex: Female
  Weight: 100 kg

DRUGS (4)
  1. LYRICA [Suspect]
  2. EFFEXOR [Concomitant]
  3. CYMBALTA [Concomitant]
  4. TRAZODONE HCL [Concomitant]

REACTIONS (1)
  - HYPERTENSION [None]
